FAERS Safety Report 4731935-8 (Version None)
Quarter: 2005Q3

REPORT INFORMATION
  Report Type: 
  Country: None (occurrence: None)
  Receive Date: 20050725
  Receipt Date: 20040910
  Transmission Date: 20060218
  Serious: Yes (Life-Threatening)
  Sender: FDA-Public Use
  Company Number: WAES 0409USA00886

PATIENT
  Age: 41 Year
  Sex: Male

DRUGS (6)
  1. VIOXX [Suspect]
     Indication: INFLAMMATION
     Dosage: 25 MG/DAILY/PO
     Route: 048
     Dates: start: 20040908, end: 20040910
  2. VIOXX [Suspect]
     Indication: PAIN
     Dosage: 25 MG/DAILY/PO
     Route: 048
     Dates: start: 20040908, end: 20040910
  3. CRESTOR [Concomitant]
  4. GLUCOPHAGE [Concomitant]
  5. NEXIUM [Concomitant]
  6. ASPIRIN [Concomitant]

REACTIONS (1)
  - HYPERSENSITIVITY [None]
